FAERS Safety Report 8813049 (Version 1)
Quarter: 2012Q4

REPORT INFORMATION
  Report Type: 
  Country: US (occurrence: US)
  Receive Date: 20120927
  Receipt Date: 20120927
  Transmission Date: 20130627
  Serious: No
  Sender: FDA-Public Use
  Company Number: US-B.I. PHARMACEUTICALS,INC./RIDGEFIELD-2012-BP-23291BP

PATIENT
  Age: 67 Year
  Sex: Male
  Weight: 147 kg

DRUGS (15)
  1. SPIRIVA [Suspect]
     Indication: CHRONIC OBSTRUCTIVE PULMONARY DISEASE
     Dosage: 18 mcg
     Route: 055
     Dates: start: 201201
  2. SPIRIVA [Suspect]
     Route: 048
     Dates: start: 20120924, end: 20120924
  3. DOCUSATE SODIUM [Suspect]
     Indication: FAECES HARD
     Dosage: 480 mg
     Route: 048
     Dates: start: 2009
  4. LASIX [Concomitant]
     Indication: FLUID RETENTION
     Dosage: 40 mg
     Route: 048
     Dates: start: 201208
  5. HYDRALAZINE [Concomitant]
     Indication: HYPERTENSION
     Dosage: 150 mg
     Route: 048
     Dates: start: 201101
  6. AMLODIPINE [Concomitant]
     Indication: HYPERTENSION
     Dosage: 10 mg
     Route: 048
     Dates: start: 201004
  7. HYDROCHLOROTHIAZIDE [Concomitant]
     Indication: FLUID RETENTION
     Dosage: 25 mg
     Route: 048
     Dates: start: 2009
  8. LISINOPRIL [Concomitant]
     Indication: HYPERTENSION
     Dosage: 40 mg
     Route: 048
     Dates: start: 2009
  9. INSULIN NOVOLIN [Concomitant]
     Indication: TYPE 2 DIABETES MELLITUS
     Dosage: 75 U
     Route: 058
     Dates: start: 2011
  10. NOVALOG [Concomitant]
     Indication: TYPE 2 DIABETES MELLITUS
     Route: 058
     Dates: start: 2011
  11. GABAPENTIN [Concomitant]
     Indication: NEUROPATHY PERIPHERAL
     Dosage: 800 mg
     Route: 048
     Dates: start: 2011
  12. ASPIRIN [Concomitant]
     Indication: CARDIAC DISORDER
     Dosage: 325 mg
     Route: 048
     Dates: start: 2009
  13. SIMVASTATIN [Concomitant]
     Indication: BLOOD CHOLESTEROL INCREASED
     Dosage: 40 mg
     Route: 048
     Dates: start: 2008
  14. FINASTERIDE [Concomitant]
     Indication: PROSTATIC DISORDER
     Dosage: 5 mg
     Route: 048
     Dates: start: 2011
  15. FISH OIL [Concomitant]
     Indication: BLOOD CHOLESTEROL INCREASED
     Dosage: 2000 mg
     Route: 048
     Dates: start: 2011

REACTIONS (1)
  - Incorrect route of drug administration [Recovered/Resolved]
